FAERS Safety Report 23639338 (Version 5)
Quarter: 2024Q3

REPORT INFORMATION
  Report Type: Spontaneous
  Country: US (occurrence: US)
  Receive Date: 20240316
  Receipt Date: 20240904
  Transmission Date: 20241016
  Serious: Yes (Disabling, Other)
  Sender: SANOFI AVENTIS
  Company Number: US-SA-SAC20240314000195

PATIENT
  Age: 61 Year
  Sex: Male

DRUGS (1)
  1. DUPIXENT [Suspect]
     Active Substance: DUPILUMAB
     Indication: Asthma
     Dosage: 300 MG, QOW
     Route: 058
     Dates: start: 202401, end: 202407

REACTIONS (7)
  - Loss of personal independence in daily activities [Unknown]
  - Heart rate abnormal [Unknown]
  - Presyncope [Unknown]
  - Injection site pain [Unknown]
  - Drug ineffective [Unknown]
  - Dyspnoea [Unknown]
  - COVID-19 [Recovering/Resolving]

NARRATIVE: CASE EVENT DATE: 20240101
